FAERS Safety Report 7240463-X (Version None)
Quarter: 2011Q1

REPORT INFORMATION
  Report Type: 
  Country: None (occurrence: None)
  Receive Date: 20110124
  Receipt Date: 20110119
  Transmission Date: 20110831
  Serious: Yes (Other)
  Sender: FDA-Public Use
  Company Number: US-PFIZER INC-2011013710

PATIENT
  Sex: Female

DRUGS (2)
  1. CLEOCIN [Suspect]
     Indication: TOOTH DISORDER
     Dosage: 300 MG, UNK
     Route: 048
     Dates: start: 20110118, end: 20110118
  2. NAPRELAN [Concomitant]
     Indication: ILL-DEFINED DISORDER
     Dosage: UNK

REACTIONS (2)
  - PHARYNGEAL OEDEMA [None]
  - DRUG HYPERSENSITIVITY [None]
